FAERS Safety Report 6213358-8 (Version None)
Quarter: 2009Q2

REPORT INFORMATION
  Report Type: 
  Country: None (occurrence: None)
  Receive Date: 20090601
  Receipt Date: 20090601
  Transmission Date: 20091009
  Serious: Yes (Other)
  Sender: FDA-Public Use
  Company Number: None

PATIENT
  Age: 48 Year
  Sex: Female
  Weight: 192.7787 kg

DRUGS (2)
  1. TOPIRAMATE [Suspect]
     Indication: MIGRAINE
     Dosage: 3 25 MG TABLETS 2 TIMES PER DAY PO
     Route: 048
     Dates: start: 20090513, end: 20090530
  2. TOPIRAMATE [Suspect]
     Indication: BIPOLAR DISORDER
     Dosage: 2 100 MG TABLETS 1 TIME PER DAY PO
     Route: 048
     Dates: start: 20090512, end: 20090528

REACTIONS (2)
  - MIGRAINE [None]
  - PRODUCT SUBSTITUTION ISSUE [None]
